FAERS Safety Report 10184602 (Version 2)
Quarter: 2014Q2

REPORT INFORMATION
  Report Type: Spontaneous
  Country: NO (occurrence: NO)
  Receive Date: 20140521
  Receipt Date: 20140529
  Transmission Date: 20141212
  Serious: Yes (Other)
  Sender: FDA-Public Use
  Company Number: NO-ACCORD-023774

PATIENT
  Age: 55 Year
  Sex: Female

DRUGS (3)
  1. CIPROFLOXACIN [Suspect]
     Indication: URINARY TRACT INFECTION
     Route: 065
  2. TRAMADOL HYDRCHLORIDE [Suspect]
     Indication: PAIN
     Dosage: RECEIVED NO MORE THAN THREE TIMES DAILY
  3. DULOXETINE/DULOXETINE HYDROCHLORIDE [Interacting]
     Indication: PAIN

REACTIONS (2)
  - Drug interaction [Unknown]
  - Serotonin syndrome [Unknown]
